FAERS Safety Report 4901727-5 (Version None)
Quarter: 2006Q1

REPORT INFORMATION
  Report Type: 
  Country: None (occurrence: None)
  Receive Date: 20060206
  Receipt Date: 20060202
  Transmission Date: 20060701
  Serious: Yes (Life-Threatening, Hospitalization)
  Sender: FDA-Public Use
  Company Number: FR-BRACCO-BRO-009820

PATIENT
  Age: 29 Year
  Sex: Male

DRUGS (4)
  1. IOPAMIRON [Suspect]
     Indication: SPINAL MYELOGRAM
     Route: 037
     Dates: start: 20051014, end: 20051014
  2. MINIRIN [Suspect]
     Dosage: 4 UG/ML DILUTED IN 50 ML OF SALT SOLUTION
     Route: 042
     Dates: start: 20051014, end: 20051014
  3. HYDROCORTANCYL [Suspect]
     Route: 037
     Dates: start: 20051014, end: 20051014
  4. XYLOCAINE                          /00033402/ [Suspect]
     Route: 058
     Dates: start: 20051014, end: 20051014

REACTIONS (6)
  - AMNESIA [None]
  - ATRIOVENTRICULAR BLOCK FIRST DEGREE [None]
  - ATRIOVENTRICULAR BLOCK SECOND DEGREE [None]
  - BLOOD PRESSURE SYSTOLIC INCREASED [None]
  - CARDIAC ARREST [None]
  - MYOCLONUS [None]
